FAERS Safety Report 18458077 (Version 2)
Quarter: 2021Q1

REPORT INFORMATION
  Report Type: Spontaneous
  Country: US (occurrence: US)
  Receive Date: 20201103
  Receipt Date: 20210312
  Transmission Date: 20210419
  Serious: No
  Sender: FDA-Public Use
  Company Number: US-FARMAPROD-202009-1208

PATIENT
  Sex: Female

DRUGS (10)
  1. PRESERVISION AREDS [Concomitant]
     Active Substance: MINERALS\VITAMINS
  2. VANCOMYCIN HCL [Concomitant]
     Active Substance: VANCOMYCIN HYDROCHLORIDE
     Dosage: VIAL
  3. TOBRAMYCIN. [Concomitant]
     Active Substance: TOBRAMYCIN
  4. VANCOMYCIN HCL [Concomitant]
     Active Substance: VANCOMYCIN HYDROCHLORIDE
  5. BACITRACIN. [Concomitant]
     Active Substance: BACITRACIN
     Dosage: 500 UNITS/G
  6. MULTIVITAMINES [Concomitant]
     Active Substance: VITAMINS
  7. IRON [Concomitant]
     Active Substance: IRON
     Dosage: 325 (65) MG
  8. LOTEMAX [Concomitant]
     Active Substance: LOTEPREDNOL ETABONATE
  9. OXERVATE [Suspect]
     Active Substance: CENEGERMIN-BKBJ
     Indication: ULCERATIVE KERATITIS
     Route: 047
     Dates: start: 20200831
  10. FISH OIL [Concomitant]
     Active Substance: FISH OIL
     Dosage: 100?150 MG

REACTIONS (5)
  - Erythema of eyelid [Unknown]
  - Lacrimation increased [Unknown]
  - Swelling of eyelid [Unknown]
  - Product administration error [Unknown]
  - Eye pain [Unknown]
